FAERS Safety Report 13919632 (Version 1)
Quarter: 2017Q3

REPORT INFORMATION
  Report Type: Spontaneous
  Country: US (occurrence: None)
  Receive Date: 20170824
  Receipt Date: 20170824
  Transmission Date: 20171127
  Serious: Yes (Other)
  Sender: FDA-Public Use
  Company Number: None

PATIENT
  Age: 46 Year
  Sex: Male
  Weight: 71 kg

DRUGS (1)
  1. ERITROMICINA (ERYTHROMYCIN) [Suspect]
     Active Substance: ERYTHROMYCIN
     Indication: PHARYNGITIS
     Dates: start: 20170824

REACTIONS (2)
  - Pain [None]
  - Musculoskeletal chest pain [None]

NARRATIVE: CASE EVENT DATE: 20170824
